FAERS Safety Report 7199303-X (Version None)
Quarter: 2010Q4

REPORT INFORMATION
  Report Type: 
  Country: None (occurrence: None)
  Receive Date: 20101228
  Receipt Date: 20101208
  Transmission Date: 20110411
  Serious: Yes (Hospitalization)
  Sender: FDA-Public Use
  Company Number: JP-BAYER-200911691BYL

PATIENT
  Age: 77 Year
  Sex: Male
  Weight: 62 kg

DRUGS (43)
  1. NEXAVAR [Suspect]
     Indication: HEPATIC NEOPLASM MALIGNANT
     Route: 048
     Dates: start: 20090313, end: 20090330
  2. NEXAVAR [Suspect]
     Dosage: 400 MG (DAILY DOSE), , ORAL
     Route: 048
     Dates: start: 20090427, end: 20090522
  3. NEXAVAR [Suspect]
     Route: 048
     Dates: start: 20090604, end: 20090618
  4. NEXAVAR [Suspect]
     Route: 048
     Dates: start: 20090702, end: 20091027
  5. SOLDEM 3A [Suspect]
     Indication: FLUID REPLACEMENT
     Dosage: 1000 ML (DAILY DOSE), , INTRAVENOUS
     Route: 042
     Dates: start: 20090313
  6. SOLDEM 3A [Suspect]
     Indication: PREMEDICATION
     Dosage: 1500 ML (DAILY DOSE), , INTRAVENOUS
     Route: 042
     Dates: start: 20090314, end: 20090315
  7. SOLDEM 3A [Suspect]
     Dosage: 500 ML (DAILY DOSE), , INTRAVENOUS
     Route: 042
     Dates: start: 20090316, end: 20090318
  8. SOLDEM 3A [Suspect]
     Dosage: 1000 ML (DAILY DOSE), , INTRAVENOUS
     Route: 042
     Dates: start: 20090430
  9. SOLDEM 3A [Suspect]
     Dosage: 1500 ML (DAILY DOSE), , INTRAVENOUS
     Route: 042
     Dates: start: 20090501, end: 20090502
  10. SOLDEM 3A [Suspect]
     Dosage: 1000 ML (DAILY DOSE), , INTRAVENOUS
     Route: 042
     Dates: start: 20090604
  11. SOLDEM 3A [Suspect]
     Dosage: 1500 ML (DAILY DOSE), , INTRAVENOUS
     Route: 042
     Dates: start: 20090605, end: 20090606
  12. TAKEPRON [Concomitant]
     Indication: PROPHYLAXIS AGAINST GASTROINTESTINAL ULCER
     Dosage: 30 MG (DAILY DOSE), , ORAL
     Route: 048
     Dates: end: 20100613
  13. MUCOSOLVAN [Concomitant]
     Dosage: 45 MG (DAILY DOSE), , ORAL
     Route: 048
     Dates: start: 20090313, end: 20100613
  14. LOXOPROFEN [Concomitant]
     Dosage: 180 MG (DAILY DOSE), , ORAL
     Route: 048
     Dates: start: 20090313, end: 20100613
  15. PURSENNID [Concomitant]
     Indication: CONSTIPATION PROPHYLAXIS
     Dosage: 24 MG (DAILY DOSE), , ORAL
     Route: 048
     Dates: start: 20090313, end: 20100613
  16. MAGNESIUM OXIDE [Concomitant]
     Indication: CONSTIPATION PROPHYLAXIS
     Dosage: 0.5 G (DAILY DOSE), , ORAL
     Route: 048
     Dates: start: 20090318, end: 20100613
  17. LECICARBON [Concomitant]
     Indication: CONSTIPATION PROPHYLAXIS
     Dosage: 1 DF (DAILY DOSE), , RECTAL
     Route: 054
     Dates: start: 20090318
  18. POSTERISAN [Concomitant]
     Dosage: UNK UNK, QS
     Route: 061
     Dates: start: 20090319, end: 20100613
  19. DIAZEPAM [Concomitant]
     Indication: PREMEDICATION
     Dosage: 10 MG (DAILY DOSE), , INTRAVENOUS
     Route: 042
     Dates: start: 20090313
  20. DIAZEPAM [Concomitant]
     Dosage: 10 MG (DAILY DOSE), , INTRAVENOUS
     Route: 042
     Dates: start: 20090430
  21. SEISHOKU [Concomitant]
     Indication: PROPHYLAXIS
     Dosage: 550 ML (DAILY DOSE), , INTRAVENOUS
     Route: 042
     Dates: start: 20090313
  22. SEISHOKU [Concomitant]
     Indication: PREMEDICATION
     Dosage: DAILY DOSE 50 ML
     Route: 042
     Dates: start: 20090313, end: 20090315
  23. SEISHOKU [Concomitant]
     Dosage: 42 ML (DAILY DOSE), , INTRAVENOUS
     Route: 042
     Dates: start: 20090313
  24. SEISHOKU [Concomitant]
     Dosage: 550 ML (DAILY DOSE), , INTRAVENOUS
     Route: 042
     Dates: start: 20090430
  25. SEISHOKU [Concomitant]
     Dosage: 50 ML (DAILY DOSE), , INTRAVENOUS
     Route: 042
     Dates: start: 20090430, end: 20090502
  26. SEISHOKU [Concomitant]
     Dosage: 42 ML (DAILY DOSE), , INTRAVENOUS
     Route: 042
     Dates: start: 20090430
  27. SEISHOKU [Concomitant]
     Dosage: 500 ML (DAILY DOSE), , INTRAVENOUS
     Route: 042
     Dates: start: 20090604
  28. SEISHOKU [Concomitant]
     Dosage: 50 ML (DAILY DOSE), , INTRAVENOUS
     Route: 042
     Dates: start: 20090604, end: 20090606
  29. SEISHOKU [Concomitant]
     Dosage: 42 ML (DAILY DOSE), , INTRAVENOUS
     Route: 042
     Dates: start: 20090604
  30. PENTAZOCINE LACTATE [Concomitant]
     Indication: PREMEDICATION
     Dosage: 15 MG (DAILY DOSE), , INTRAVENOUS
     Route: 042
     Dates: start: 20090313
  31. PENTAZOCINE LACTATE [Concomitant]
     Dosage: 15 MG (DAILY DOSE), , INTRAVENOUS
     Route: 042
     Dates: start: 20090430
  32. GLUCOSE [Concomitant]
     Indication: PREMEDICATION
     Dosage: 500 ML (DAILY DOSE), , INTRAVENOUS
     Route: 042
     Dates: start: 20090313
  33. GLUCOSE [Concomitant]
     Dosage: 500 ML (DAILY DOSE), , INTRAVENOUS
     Route: 042
     Dates: start: 20090430
  34. GLUCOSE [Concomitant]
     Dosage: 500 ML (DAILY DOSE), , INTRAVENOUS
     Route: 042
     Dates: start: 20090604
  35. GRANISETRON HCL [Concomitant]
     Indication: PROPHYLAXIS
     Dosage: 3 MG (DAILY DOSE), , INTRAVENOUS
     Route: 042
     Dates: start: 20090313, end: 20090315
  36. GRANISETRON HCL [Concomitant]
     Dosage: 3 MG (DAILY DOSE), , INTRAVENOUS
     Route: 042
     Dates: start: 20090430, end: 20090502
  37. GRANISETRON HCL [Concomitant]
     Dosage: 3 MG (DAILY DOSE), , INTRAVENOUS
     Route: 042
     Dates: start: 20090604, end: 20090606
  38. LACTEC [Concomitant]
     Indication: PREMEDICATION
     Dosage: 500 ML (DAILY DOSE), , INTRAVENOUS
     Route: 042
     Dates: start: 20090313
  39. LACTEC [Concomitant]
     Dosage: 500 ML (DAILY DOSE), , INTRAVENOUS
     Route: 042
     Dates: start: 20090430
  40. LACTEC [Concomitant]
     Dosage: 500 ML (DAILY DOSE), , INTRAVENOUS
     Route: 042
     Dates: start: 20090604
  41. CISPLATIN [Concomitant]
     Dosage: 60 MG (DAILY DOSE), , INTRAVENOUS
     Route: 042
     Dates: start: 20090313
  42. CISPLATIN [Concomitant]
     Dosage: 60 MG (DAILY DOSE), , INTRAVENOUS
     Route: 042
     Dates: start: 20090430
  43. CISPLATIN [Concomitant]
     Dosage: 60 MG (DAILY DOSE), , INTRAVENOUS
     Route: 042
     Dates: start: 20090604

REACTIONS (16)
  - ASTHENIA [None]
  - C-REACTIVE PROTEIN INCREASED [None]
  - DECREASED APPETITE [None]
  - DIZZINESS [None]
  - DYSPHONIA [None]
  - HEPATIC FUNCTION ABNORMAL [None]
  - HICCUPS [None]
  - LYMPHOCYTE COUNT DECREASED [None]
  - MALAISE [None]
  - OEDEMA [None]
  - PALMAR-PLANTAR ERYTHRODYSAESTHESIA SYNDROME [None]
  - PLATELET COUNT DECREASED [None]
  - RASH [None]
  - STOMATITIS [None]
  - TREMOR [None]
  - WHITE BLOOD CELL COUNT DECREASED [None]
